FAERS Safety Report 11856934 (Version 1)
Quarter: 2015Q4

REPORT INFORMATION
  Report Type: Spontaneous
  Country: US (occurrence: US)
  Receive Date: 20151221
  Receipt Date: 20151221
  Transmission Date: 20160305
  Serious: No
  Sender: FDA-Public Use
  Company Number: US-JNJFOC-20151217120

PATIENT
  Age: 77 Year
  Sex: Female
  Weight: 64.41 kg

DRUGS (1)
  1. FENTANYL TRANSDERMAL SYSTEM [Suspect]
     Active Substance: FENTANYL
     Indication: BACK PAIN
     Route: 062
     Dates: start: 20151214

REACTIONS (1)
  - Drug administered at inappropriate site [Unknown]

NARRATIVE: CASE EVENT DATE: 20151217
